FAERS Safety Report 18857001 (Version 1)
Quarter: 2021Q1

REPORT INFORMATION
  Report Type: Spontaneous
  Country: CH (occurrence: CH)
  Receive Date: 20210208
  Receipt Date: 20210208
  Transmission Date: 20210420
  Serious: Yes (Life-Threatening, Hospitalization, Other)
  Sender: FDA-Public Use
  Company Number: CH-CELLTRION INC.-2021CH001511

PATIENT

DRUGS (2)
  1. INFLECTRA [Suspect]
     Active Substance: INFLIXIMAB-DYYB
     Dosage: 300 MG, SINGLE
     Route: 042
     Dates: start: 20201116, end: 20201116
  2. INFLECTRA [Suspect]
     Active Substance: INFLIXIMAB-DYYB
     Indication: CROHN^S DISEASE
     Dosage: 300 MG, SINGLE
     Route: 042
     Dates: start: 20201102, end: 20201102

REACTIONS (3)
  - Antiphospholipid syndrome [Not Recovered/Not Resolved]
  - Off label use [Unknown]
  - Cerebral venous sinus thrombosis [Not Recovered/Not Resolved]

NARRATIVE: CASE EVENT DATE: 20201102
